FAERS Safety Report 24352138 (Version 1)
Quarter: 2024Q3

REPORT INFORMATION
  Report Type: Report from Study
  Country: DE (occurrence: DE)
  Receive Date: 20240923
  Receipt Date: 20240923
  Transmission Date: 20241017
  Serious: No
  Sender: ROCHE
  Company Number: DE-ROCHE-3256977

PATIENT

DRUGS (1)
  1. TRASTUZUMAB [Suspect]
     Active Substance: TRASTUZUMAB
     Indication: HER2 positive breast cancer
     Dosage: INITIAL LOADING DOSE OF 8 MG/KG AND MAINTENANCE DOSES OF 6 MG/KG.
     Route: 042

REACTIONS (1)
  - Ejection fraction decreased [Unknown]
